FAERS Safety Report 21069182 (Version 1)
Quarter: 2022Q3

REPORT INFORMATION
  Report Type: Spontaneous
  Country: CA (occurrence: CA)
  Receive Date: 20220712
  Receipt Date: 20220712
  Transmission Date: 20221027
  Serious: Yes (Life-Threatening, Hospitalization, Disabling, Other)
  Sender: FDA-Public Use
  Company Number: E2B_05033017

PATIENT
  Age: 17 Year
  Sex: Female

DRUGS (5)
  1. TRAMADOL HYDROCHLORIDE [Suspect]
     Active Substance: TRAMADOL HYDROCHLORIDE
     Indication: Pain
     Route: 048
  2. ACETAMINOPHEN\OXYCODONE HYDROCHLORIDE [Suspect]
     Active Substance: ACETAMINOPHEN\OXYCODONE HYDROCHLORIDE
     Indication: Pain
     Route: 048
  3. HYDROMORPHONE [Suspect]
     Active Substance: HYDROMORPHONE
     Indication: Pain
     Route: 048
  4. OXYCODONE HYDROCHLORIDE [Suspect]
     Active Substance: OXYCODONE HYDROCHLORIDE
     Indication: Pain
     Route: 048
  5. OXYCONTIN [Suspect]
     Active Substance: OXYCODONE HYDROCHLORIDE
     Indication: Pain
     Route: 048

REACTIONS (12)
  - Overdose [Recovered/Resolved with Sequelae]
  - Physical disability [Recovered/Resolved with Sequelae]
  - Type 1 diabetes mellitus [Recovered/Resolved with Sequelae]
  - Unevaluable event [Recovered/Resolved with Sequelae]
  - Abortion spontaneous [Recovered/Resolved with Sequelae]
  - Coma [Recovered/Resolved with Sequelae]
  - Drug dependence [Recovered/Resolved with Sequelae]
  - Drug withdrawal syndrome [Recovered/Resolved with Sequelae]
  - Emotional distress [Recovered/Resolved with Sequelae]
  - Maternal exposure during pregnancy [Recovered/Resolved with Sequelae]
  - Menopause [Recovered/Resolved with Sequelae]
  - Mental disability [Recovered/Resolved with Sequelae]
